FAERS Safety Report 5114050-3 (Version None)
Quarter: 2006Q3

REPORT INFORMATION
  Report Type: 
  Country: None (occurrence: None)
  Receive Date: 20060925
  Receipt Date: 20060913
  Transmission Date: 20061208
  Serious: Yes (Other)
  Sender: FDA-Public Use
  Company Number: ES-MERCK-0609ESP00029

PATIENT
  Age: 42 Year
  Sex: Female

DRUGS (3)
  1. CASPOFUNGIN ACETATE [Suspect]
     Indication: SEPSIS
     Route: 042
     Dates: start: 20060901
  2. AMPHOTERICIN B AND CHOLESTEROL AND DISTEAROYLPHOSPHATIDYLGLYCEROL AND [Suspect]
     Indication: SEPSIS
     Route: 042
  3. MEROPENEM [Suspect]
     Indication: SEPSIS
     Route: 042
     Dates: end: 20060901

REACTIONS (1)
  - CONVULSION [None]
